FAERS Safety Report 14523617 (Version 15)
Quarter: 2020Q4

REPORT INFORMATION
  Report Type: Report from Study
  Country: DE (occurrence: DE)
  Receive Date: 20180212
  Receipt Date: 20201123
  Transmission Date: 20210113
  Serious: Yes (Hospitalization, Other)
  Sender: FDA-Public Use
  Company Number: DE-ROCHE-2071590

PATIENT
  Age: 66 Year
  Sex: Male
  Weight: 118 kg

DRUGS (24)
  1. CANDESARTAN. [Concomitant]
     Active Substance: CANDESARTAN
     Route: 048
  2. PRADAXA [Concomitant]
     Active Substance: DABIGATRAN ETEXILATE MESYLATE
     Route: 048
  3. PANTOZOL [Concomitant]
     Active Substance: PANTOPRAZOLE SODIUM
     Route: 048
     Dates: start: 20180222
  4. VENETOCLAX. [Suspect]
     Active Substance: VENETOCLAX
     Indication: CHRONIC LYMPHOCYTIC LEUKAEMIA
     Dosage: CYCLE 1 (LAST 7 DAYS 20 MG DAILY) CYCLE 2 (RAMP UP 50 MG TO 400 MG) LAST DOSE PRIOR TO SAE ON 28/FEB
     Route: 048
     Dates: start: 20180222
  5. APIXABAN [Concomitant]
     Active Substance: APIXABAN
     Route: 048
  6. BISOPROLOL [Concomitant]
     Active Substance: BISOPROLOL
     Route: 048
  7. COTRIMOXAZOLE [Concomitant]
     Active Substance: SULFAMETHOXAZOLE\TRIMETHOPRIM
     Dates: start: 20180327
  8. IDELALISIB [Concomitant]
     Active Substance: IDELALISIB
     Dates: start: 20200718
  9. BISOPROLOL [Concomitant]
     Active Substance: BISOPROLOL
     Route: 048
  10. APIXABAN [Concomitant]
     Active Substance: APIXABAN
     Route: 048
     Dates: start: 20180407
  11. TOREM [Concomitant]
     Active Substance: TORSEMIDE
     Route: 048
  12. TORASEMIDE [Concomitant]
     Active Substance: TORSEMIDE
     Route: 048
     Dates: start: 20190423
  13. TORASEMIDE [Concomitant]
     Active Substance: TORSEMIDE
     Route: 048
     Dates: start: 20180327
  14. OBINUTUZUMAB. [Suspect]
     Active Substance: OBINUTUZUMAB
     Indication: CHRONIC LYMPHOCYTIC LEUKAEMIA
     Dosage: FREQUENCY AND DOSE AS PER PROTOCOL?MOST RECENT DOSE 03/SEP/2018, 1000 MG
     Route: 042
     Dates: start: 20180116
  15. HYDROCHLOROTHIAZIDE. [Concomitant]
     Active Substance: HYDROCHLOROTHIAZIDE
  16. DABIGATRAN [Concomitant]
     Active Substance: DABIGATRAN
  17. TILIDIN [Concomitant]
     Active Substance: NALOXONE HYDROCHLORIDE\TILIDINE HYDROCHLORIDE
     Dosage: 100/8
  18. RITUXIMAB. [Concomitant]
     Active Substance: RITUXIMAB
     Route: 041
     Dates: start: 20200717
  19. ALLOPURINOL. [Concomitant]
     Active Substance: ALLOPURINOL
     Route: 048
     Dates: start: 20180413
  20. OBINUTUZUMAB. [Suspect]
     Active Substance: OBINUTUZUMAB
     Dosage: (1000 MG FROM CYCLE 2-6 AS PER PROTOCOL) DATE OF LAST DOSE PRIOR TO SAE 31/JAN/2018 AND 22/FEB/2018
     Route: 042
  21. IBRUTINIB [Suspect]
     Active Substance: IBRUTINIB
     Indication: CHRONIC LYMPHOCYTIC LEUKAEMIA
     Dosage: FORM AND FREQUENCY AS PER PROTOCOL?DATE OF LAST DOSE PRIOR TO SAE 07/FEB/2018 AND 01/MAR/2018 AT 420
     Route: 048
     Dates: start: 20180116, end: 20180311
  22. TELMISARTAN. [Concomitant]
     Active Substance: TELMISARTAN
  23. VORICONAZOLE. [Concomitant]
     Active Substance: VORICONAZOLE
     Route: 048
     Dates: start: 20190215
  24. PARACETAMOL [Concomitant]
     Active Substance: ACETAMINOPHEN

REACTIONS (10)
  - Coordination abnormal [Not Recovered/Not Resolved]
  - Cystitis escherichia [Recovered/Resolved]
  - Fall [Unknown]
  - Humerus fracture [Recovered/Resolved with Sequelae]
  - Febrile infection [Not Recovered/Not Resolved]
  - Generalised tonic-clonic seizure [Not Recovered/Not Resolved]
  - Cerebral aspergillosis [Not Recovered/Not Resolved]
  - Febrile neutropenia [Recovered/Resolved]
  - Dehydration [Not Recovered/Not Resolved]
  - Febrile neutropenia [Not Recovered/Not Resolved]

NARRATIVE: CASE EVENT DATE: 20180207
